FAERS Safety Report 7352888-2 (Version None)
Quarter: 2011Q1

REPORT INFORMATION
  Report Type: 
  Country: None (occurrence: None)
  Receive Date: 20110315
  Receipt Date: 20110307
  Transmission Date: 20110831
  Serious: Yes (Other)
  Sender: FDA-Public Use
  Company Number: B0704637A

PATIENT

DRUGS (1)
  1. NIQUITIN CQ CLEAR [Suspect]
     Indication: PRODUCT USED FOR UNKNOWN INDICATION
     Route: 062

REACTIONS (3)
  - WEIGHT INCREASED [None]
  - SKIN DISORDER [None]
  - PSORIASIS [None]
